FAERS Safety Report 11348783 (Version 1)
Quarter: 2015Q3

REPORT INFORMATION
  Report Type: Spontaneous
  Country: CN (occurrence: CN)
  Receive Date: 20150806
  Receipt Date: 20150806
  Transmission Date: 20151125
  Serious: Yes (Other)
  Sender: FDA-Public Use
  Company Number: CN-BAXTER-2015BAX041438

PATIENT
  Age: 52 Year
  Sex: Male

DRUGS (21)
  1. MORPHINE [Suspect]
     Active Substance: MORPHINE
     Indication: CHEST PAIN
  2. PHENTOLAMINE [Suspect]
     Active Substance: PHENTOLAMINE
     Indication: HEART RATE INCREASED
  3. METOPROLOL SUCCINATE. [Suspect]
     Active Substance: METOPROLOL SUCCINATE
     Indication: POSITIVE CARDIAC INOTROPIC EFFECT
     Route: 065
     Dates: start: 2013
  4. PHENTOLAMINE [Suspect]
     Active Substance: PHENTOLAMINE
     Indication: POSITIVE CARDIAC INOTROPIC EFFECT
     Route: 065
     Dates: start: 2013
  5. ESMOLOL HYDROCHLORIDE 10MG/ML [Suspect]
     Active Substance: ESMOLOL HYDROCHLORIDE
     Indication: POSITIVE CARDIAC INOTROPIC EFFECT
     Route: 042
     Dates: start: 2013
  6. ESMOLOL HYDROCHLORIDE 10MG/ML [Suspect]
     Active Substance: ESMOLOL HYDROCHLORIDE
     Indication: OFF LABEL USE
  7. MORPHINE [Suspect]
     Active Substance: MORPHINE
     Indication: POSITIVE CARDIAC INOTROPIC EFFECT
     Route: 065
     Dates: start: 2013
  8. MORPHINE [Suspect]
     Active Substance: MORPHINE
     Indication: BLOOD PRESSURE SYSTOLIC INCREASED
  9. NIFEDIPINE. [Suspect]
     Active Substance: NIFEDIPINE
     Indication: CHEST PAIN
  10. METOPROLOL SUCCINATE. [Suspect]
     Active Substance: METOPROLOL SUCCINATE
     Indication: HEART RATE INCREASED
  11. NIFEDIPINE. [Suspect]
     Active Substance: NIFEDIPINE
     Indication: POSITIVE CARDIAC INOTROPIC EFFECT
     Route: 065
     Dates: start: 2013
  12. ESMOLOL HYDROCHLORIDE 10MG/ML [Suspect]
     Active Substance: ESMOLOL HYDROCHLORIDE
     Indication: CHEST PAIN
  13. METOPROLOL SUCCINATE. [Suspect]
     Active Substance: METOPROLOL SUCCINATE
     Indication: BLOOD PRESSURE SYSTOLIC INCREASED
  14. PHENTOLAMINE [Suspect]
     Active Substance: PHENTOLAMINE
     Indication: CHEST PAIN
  15. NIFEDIPINE. [Suspect]
     Active Substance: NIFEDIPINE
     Indication: HEART RATE INCREASED
  16. ESMOLOL HYDROCHLORIDE 10MG/ML [Suspect]
     Active Substance: ESMOLOL HYDROCHLORIDE
     Indication: HEART RATE INCREASED
  17. METOPROLOL SUCCINATE. [Suspect]
     Active Substance: METOPROLOL SUCCINATE
     Indication: CHEST PAIN
  18. MORPHINE [Suspect]
     Active Substance: MORPHINE
     Indication: HEART RATE INCREASED
  19. NIFEDIPINE. [Suspect]
     Active Substance: NIFEDIPINE
     Indication: BLOOD PRESSURE SYSTOLIC INCREASED
  20. ESMOLOL HYDROCHLORIDE 10MG/ML [Suspect]
     Active Substance: ESMOLOL HYDROCHLORIDE
     Indication: BLOOD PRESSURE SYSTOLIC INCREASED
  21. PHENTOLAMINE [Suspect]
     Active Substance: PHENTOLAMINE
     Indication: BLOOD PRESSURE SYSTOLIC INCREASED

REACTIONS (5)
  - Condition aggravated [Recovered/Resolved]
  - Penetrating atherosclerotic ulcer [Recovered/Resolved]
  - Aortic dissection [Recovered/Resolved]
  - Chest pain [Recovered/Resolved]
  - Disease progression [Recovered/Resolved]
